FAERS Safety Report 14906876 (Version 2)
Quarter: 2018Q2

REPORT INFORMATION
  Report Type: Spontaneous
  Country: US (occurrence: US)
  Receive Date: 20180517
  Receipt Date: 20180608
  Transmission Date: 20180711
  Serious: No
  Sender: FDA-Public Use
  Company Number: US-TEVA-2018-US-891973

PATIENT

DRUGS (1)
  1. AMPHETAMINE W/DEXTROAMPHETAMINE [Suspect]
     Active Substance: AMPHETAMINE SULFATE\DEXTROAMPHETAMINE
     Indication: ATTENTION DEFICIT/HYPERACTIVITY DISORDER

REACTIONS (11)
  - Bruxism [Unknown]
  - Anxiety [Unknown]
  - Tension [Unknown]
  - Vision blurred [Unknown]
  - Product size issue [Unknown]
  - Muscle spasms [Unknown]
  - Drug effect variable [Unknown]
  - Toothache [Unknown]
  - Product quality issue [Unknown]
  - Drug ineffective [Unknown]
  - Palpitations [Unknown]
